FAERS Safety Report 11705453 (Version 1)
Quarter: 2015Q4

REPORT INFORMATION
  Report Type: Spontaneous
  Country: ES (occurrence: ES)
  Receive Date: 20151106
  Receipt Date: 20151106
  Transmission Date: 20160304
  Serious: Yes (Life-Threatening, Hospitalization)
  Sender: FDA-Public Use
  Company Number: ES-ACTAVIS-2015-23753

PATIENT
  Age: 65 Year
  Sex: Male

DRUGS (2)
  1. LARGACTIL                          /00011902/ [Suspect]
     Active Substance: CHLORPROMAZINE HYDROCHLORIDE
     Indication: SCHIZOPHRENIA
     Dosage: 25 MG, BID, 1-0-1
     Route: 048
     Dates: start: 20060626, end: 20151011
  2. QUETIAPINA ACTAVIS [Suspect]
     Active Substance: QUETIAPINE
     Indication: SCHIZOPHRENIA
     Dosage: 400 MG, TID, 2-2-2
     Route: 048
     Dates: start: 20120321, end: 20151011

REACTIONS (1)
  - Neuroleptic malignant syndrome [Recovering/Resolving]

NARRATIVE: CASE EVENT DATE: 20151011
